FAERS Safety Report 6368693-X (Version None)
Quarter: 2009Q3

REPORT INFORMATION
  Report Type: 
  Country: None (occurrence: None)
  Receive Date: 20090917
  Receipt Date: 20090917
  Transmission Date: 20100115
  Serious: Yes (Hospitalization)
  Sender: FDA-Public Use
  Company Number: None

PATIENT
  Age: 73 Year
  Sex: Female
  Weight: 69.8539 kg

DRUGS (1)
  1. MACROBID [Suspect]
     Indication: URINARY TRACT INFECTION
     Dosage: ONE TWICE DAILY PO
     Route: 048
     Dates: start: 20090907, end: 20090912

REACTIONS (4)
  - CONDITION AGGRAVATED [None]
  - FEELING ABNORMAL [None]
  - LUNG INFILTRATION [None]
  - PNEUMONITIS [None]
